FAERS Safety Report 19431115 (Version 1)
Quarter: 2021Q2

REPORT INFORMATION
  Report Type: Spontaneous
  Country: US (occurrence: US)
  Receive Date: 20210617
  Receipt Date: 20210617
  Transmission Date: 20210717
  Serious: Yes (Other)
  Sender: FDA-Public Use
  Company Number: US-PFIZER INC-2021658031

PATIENT
  Age: 59 Year
  Sex: Female
  Weight: 58.96 kg

DRUGS (22)
  1. FASLODEX [Concomitant]
     Active Substance: FULVESTRANT
  2. LORAZEPAM. [Concomitant]
     Active Substance: LORAZEPAM
  3. COVID?19 VACCINE [Concomitant]
  4. CLONAZEPAM. [Concomitant]
     Active Substance: CLONAZEPAM
  5. PREGABALIN. [Concomitant]
     Active Substance: PREGABALIN
  6. FLUCONAZOLE. [Concomitant]
     Active Substance: FLUCONAZOLE
  7. PLEGRIDY [Concomitant]
     Active Substance: PEGINTERFERON BETA-1A
  8. DICYCLOMINE HCL [Concomitant]
     Active Substance: DICYCLOMINE HYDROCHLORIDE
  9. BACLOFEN. [Concomitant]
     Active Substance: BACLOFEN
  10. CORLANOR [Concomitant]
     Active Substance: IVABRADINE HYDROCHLORIDE
  11. TRELEGY ELLIPTA [Concomitant]
     Active Substance: FLUTICASONE FUROATE\UMECLIDINIUM BROMIDE\VILANTEROL TRIFENATATE
  12. IBRANCE [Suspect]
     Active Substance: PALBOCICLIB
     Indication: BREAST CANCER FEMALE
     Dosage: 100 MG, DAILY FOR 21 DAYS
     Route: 048
     Dates: start: 20210414
  13. MORPHINE SULFATE ER [Concomitant]
     Active Substance: MORPHINE SULFATE
  14. NYSTATIN. [Concomitant]
     Active Substance: NYSTATIN
  15. MELATONIN [Concomitant]
     Active Substance: MELATONIN
  16. DESLORATADINE. [Concomitant]
     Active Substance: DESLORATADINE
  17. ADVIL [Concomitant]
     Active Substance: IBUPROFEN
  18. HYOSCYAMINE SULFATE ELIXIR [Concomitant]
  19. HYDROCODONE BITARTRATE AND ACETAMINOPHEN [Concomitant]
     Active Substance: ACETAMINOPHEN\HYDROCODONE BITARTRATE
  20. GABAPENTIN. [Concomitant]
     Active Substance: GABAPENTIN
  21. ALBUTEROL SULFATE HFA [Concomitant]
     Active Substance: ALBUTEROL SULFATE
  22. LIDOCAINE. [Concomitant]
     Active Substance: LIDOCAINE

REACTIONS (5)
  - Somnolence [Unknown]
  - Multiple fractures [Unknown]
  - Osteoporosis [Unknown]
  - Fall [Unknown]
  - Fatigue [Unknown]

NARRATIVE: CASE EVENT DATE: 20210518
